FAERS Safety Report 18822315 (Version 1)
Quarter: 2021Q1

REPORT INFORMATION
  Report Type: Spontaneous
  Country: US (occurrence: US)
  Receive Date: 20210202
  Receipt Date: 20210202
  Transmission Date: 20210419
  Serious: No
  Sender: FDA-Public Use
  Company Number: US-GLENMARK PHARMACEUTICALS-2020GMK051465

PATIENT

DRUGS (1)
  1. FLUOCINOLONE ACETONIDE 0.01% TOPICAL OIL (BODY OIL) [Suspect]
     Active Substance: FLUOCINOLONE ACETONIDE
     Indication: PRURITUS
     Dosage: UNK, (APPLY TO SCALP EVERY 3 DAYS)
     Route: 050

REACTIONS (3)
  - Pruritus [Unknown]
  - Product dispensing error [Unknown]
  - Product administered at inappropriate site [Unknown]
